FAERS Safety Report 11624595 (Version 2)
Quarter: 2015Q4

REPORT INFORMATION
  Report Type: Spontaneous
  Country: IT (occurrence: IT)
  Receive Date: 20151013
  Receipt Date: 20151027
  Transmission Date: 20160304
  Serious: Yes (Hospitalization, Other)
  Sender: FDA-Public Use
  Company Number: PHHY2015IT120208

PATIENT
  Age: 50 Year
  Sex: Female

DRUGS (2)
  1. ONCO CARBIDE [Concomitant]
     Active Substance: HYDROXYUREA
     Indication: CHRONIC MYELOID LEUKAEMIA
     Dosage: 1 MG, UNK
     Route: 048
     Dates: start: 20150605, end: 20150612
  2. TASIGNA [Suspect]
     Active Substance: NILOTINIB
     Indication: CHRONIC MYELOID LEUKAEMIA
     Dosage: 300 MG, BID
     Route: 065
     Dates: start: 20150605, end: 20150717

REACTIONS (5)
  - Bone marrow failure [Not Recovered/Not Resolved]
  - Haematotoxicity [Unknown]
  - Haemoglobin decreased [Unknown]
  - Cytopenia [Unknown]
  - Platelet count decreased [Unknown]

NARRATIVE: CASE EVENT DATE: 20150717
